FAERS Safety Report 20775479 (Version 1)
Quarter: 2022Q2

REPORT INFORMATION
  Report Type: Spontaneous
  Country: US (occurrence: US)
  Receive Date: 20220502
  Receipt Date: 20220502
  Transmission Date: 20220721
  Serious: No
  Sender: FDA-Public Use
  Company Number: US-PFIZER INC-202200525929

PATIENT
  Sex: Female

DRUGS (1)
  1. PREMPRO [Suspect]
     Active Substance: ESTROGENS, CONJUGATED\MEDROXYPROGESTERONE ACETATE
     Indication: Endocrine disorder
     Dosage: 1 DF, 1X/DAY

REACTIONS (3)
  - Product packaging issue [Unknown]
  - Product package associated injury [Unknown]
  - Limb injury [Unknown]
